FAERS Safety Report 18399821 (Version 2)
Quarter: 2020Q4

REPORT INFORMATION
  Report Type: Spontaneous
  Country: CA (occurrence: CA)
  Receive Date: 20201019
  Receipt Date: 20201029
  Transmission Date: 20210114
  Serious: Yes (Other)
  Sender: FDA-Public Use
  Company Number: CA-AMGEN-CANSP2020168379

PATIENT
  Age: 40 Year
  Sex: Female

DRUGS (1)
  1. ENBREL [Suspect]
     Active Substance: ETANERCEPT
     Indication: RHEUMATOID ARTHRITIS
     Dosage: 50 MILLIGRAM, QWK
     Route: 065

REACTIONS (4)
  - Rheumatoid arthritis [Unknown]
  - Stress [Unknown]
  - Post procedural infection [Unknown]
  - Maternal exposure during pregnancy [Unknown]
